FAERS Safety Report 11374734 (Version 1)
Quarter: 2015Q3

REPORT INFORMATION
  Report Type: Spontaneous
  Country: DE (occurrence: DE)
  Receive Date: 20150813
  Receipt Date: 20150813
  Transmission Date: 20151125
  Serious: Yes (Hospitalization)
  Sender: FDA-Public Use
  Company Number: DE-ALKEM-001112

PATIENT
  Age: 56 Year
  Sex: Female
  Weight: 117 kg

DRUGS (2)
  1. CEFUROXIME. [Suspect]
     Active Substance: CEFUROXIME
     Indication: URINARY TRACT INFECTION
     Dosage: 500 MG EVERY DAY
     Route: 048
     Dates: start: 20150629, end: 20150706
  2. BRINTELLIX [Suspect]
     Active Substance: VORTIOXETINE HYDROBROMIDE
     Indication: DEPRESSION
     Dosage: PREVIOUSLY RECEIVED 5 MG ONCE DAILY FROM 02-JUL-2015 TO 05-JUL-2015.
     Route: 048
     Dates: start: 20150706, end: 20150706

REACTIONS (4)
  - Pruritus generalised [Recovered/Resolved]
  - Off label use [Unknown]
  - Lip swelling [Recovered/Resolved]
  - Dermatitis allergic [Recovered/Resolved]

NARRATIVE: CASE EVENT DATE: 20150706
